FAERS Safety Report 7971913-9 (Version None)
Quarter: 2011Q4

REPORT INFORMATION
  Report Type: 
  Country: None (occurrence: None)
  Receive Date: 20111212
  Receipt Date: 20111128
  Transmission Date: 20120403
  Serious: Yes (Hospitalization, Other)
  Sender: FDA-Public Use
  Company Number: PHHY2011FR104627

PATIENT
  Age: 68 Year
  Sex: Female

DRUGS (1)
  1. GLEEVEC [Suspect]
     Indication: LYMPHOCYTIC LEUKAEMIA
     Dosage: UNK
     Route: 048
     Dates: start: 20080301

REACTIONS (8)
  - PULMONARY HYPERTENSION [None]
  - ACUTE CORONARY SYNDROME [None]
  - DILATATION VENTRICULAR [None]
  - PERICARDIAL EFFUSION [None]
  - CARCINOID TUMOUR PULMONARY [None]
  - CARDIAC FAILURE [None]
  - RESPIRATORY FAILURE [None]
  - NEOPLASM MALIGNANT [None]
